FAERS Safety Report 17963016 (Version 4)
Quarter: 2022Q1

REPORT INFORMATION
  Report Type: Spontaneous
  Country: US (occurrence: US)
  Receive Date: 20200630
  Receipt Date: 20220127
  Transmission Date: 20220423
  Serious: Yes (Other)
  Sender: FDA-Public Use
  Company Number: US-GILEAD-2020-0477066

PATIENT
  Age: 50 Year
  Sex: Male
  Weight: 68.027 kg

DRUGS (69)
  1. VIREAD [Suspect]
     Active Substance: TENOFOVIR DISOPROXIL FUMARATE
     Indication: HIV infection
     Dosage: UNK
     Route: 048
     Dates: start: 20050308, end: 20090322
  2. VIREAD [Suspect]
     Active Substance: TENOFOVIR DISOPROXIL FUMARATE
     Dosage: UNK
     Route: 048
     Dates: start: 20050308, end: 20090323
  3. VIREAD [Suspect]
     Active Substance: TENOFOVIR DISOPROXIL FUMARATE
     Dosage: UNK
     Route: 065
     Dates: start: 20050305, end: 20090322
  4. TRUVADA [Suspect]
     Active Substance: EMTRICITABINE\TENOFOVIR DISOPROXIL FUMARATE
     Indication: HIV infection
     Dosage: UNK
     Route: 048
     Dates: start: 20090323, end: 20110119
  5. TRUVADA [Suspect]
     Active Substance: EMTRICITABINE\TENOFOVIR DISOPROXIL FUMARATE
     Dosage: UNK
     Route: 048
     Dates: start: 20090323, end: 20101221
  6. CALCIUM ACETATE [Concomitant]
     Active Substance: CALCIUM ACETATE
  7. SODIUM BICARBONATE [Concomitant]
     Active Substance: SODIUM BICARBONATE
  8. PROCRIT [Concomitant]
     Active Substance: ERYTHROPOIETIN
  9. RENVELA [Concomitant]
     Active Substance: SEVELAMER CARBONATE
  10. ULTRAM [Concomitant]
     Active Substance: TRAMADOL HYDROCHLORIDE
  11. INTELENCE [Concomitant]
     Active Substance: ETRAVIRINE
  12. ISENTRESS [Concomitant]
     Active Substance: RALTEGRAVIR POTASSIUM
  13. LAMIVUDINE [Concomitant]
     Active Substance: LAMIVUDINE
  14. EPOPROSTENOL [Concomitant]
     Active Substance: EPOPROSTENOL
  15. ADCIRCA [Concomitant]
     Active Substance: TADALAFIL
  16. LETAIRIS [Concomitant]
     Active Substance: AMBRISENTAN
  17. ACYCLOVIR [Concomitant]
     Active Substance: ACYCLOVIR
  18. AMOXICILLIN [Concomitant]
     Active Substance: AMOXICILLIN
  19. ATORVASTATIN [Concomitant]
     Active Substance: ATORVASTATIN
  20. BACTRIM [Concomitant]
     Active Substance: SULFAMETHOXAZOLE\TRIMETHOPRIM
  21. LASIX [Concomitant]
     Active Substance: FUROSEMIDE
  22. PREDNISONE [Concomitant]
     Active Substance: PREDNISONE
  23. TETRACYCLINE [Concomitant]
     Active Substance: TETRACYCLINE
  24. TRIAMCINOLONE [Concomitant]
     Active Substance: TRIAMCINOLONE
  25. WARFARIN [Concomitant]
     Active Substance: WARFARIN
  26. EPIVIR [Concomitant]
     Active Substance: LAMIVUDINE
  27. INVIRASE [Concomitant]
     Active Substance: SAQUINAVIR MESYLATE
  28. KALETRA [Concomitant]
     Active Substance: LOPINAVIR\RITONAVIR
  29. NORVIR [Concomitant]
     Active Substance: RITONAVIR
  30. REYATAZ [Concomitant]
     Active Substance: ATAZANAVIR SULFATE
  31. SUSTIVA [Concomitant]
     Active Substance: EFAVIRENZ
  32. VIDEX [Concomitant]
     Active Substance: DIDANOSINE
  33. ZIAGEN [Concomitant]
     Active Substance: ABACAVIR SULFATE
  34. CARVEDILOL [Concomitant]
     Active Substance: CARVEDILOL
  35. COREG [Concomitant]
     Active Substance: CARVEDILOL
  36. DILTIAZEM [Concomitant]
     Active Substance: DILTIAZEM
  37. ATENOLOL [Concomitant]
     Active Substance: ATENOLOL
  38. VELETRI [Concomitant]
     Active Substance: EPOPROSTENOL
  39. MOTRIN [Concomitant]
     Active Substance: IBUPROFEN
  40. NAPROSYN [Concomitant]
     Active Substance: NAPROXEN
  41. REVATIO [Concomitant]
     Active Substance: SILDENAFIL CITRATE
  42. LIPITOR [Concomitant]
     Active Substance: ATORVASTATIN CALCIUM
  43. LISINOPRIL [Concomitant]
     Active Substance: LISINOPRIL
  44. ADACEL TDAP [Concomitant]
     Active Substance: TETANUS TOXOID, REDUCED DIPHTHERIA TOXOID AND ACELLULAR PERTUSSIS VACCINE ADSORBED, TDAP
  45. BACTROBAN [Concomitant]
     Active Substance: MUPIROCIN\MUPIROCIN CALCIUM
  46. ANUSOL-HC [HYDROCORTISONE ACETATE] [Concomitant]
  47. ELIDEL [Concomitant]
     Active Substance: PIMECROLIMUS
  48. CIPROFLOXACIN [Concomitant]
     Active Substance: CIPROFLOXACIN
  49. DOXYCYCLINE HYCLATE [Concomitant]
     Active Substance: DOXYCYCLINE HYCLATE
  50. CLOTRIMAZOLE [Concomitant]
     Active Substance: CLOTRIMAZOLE
  51. CLARITIN [Concomitant]
     Active Substance: LORATADINE
  52. COLACE [Concomitant]
     Active Substance: DOCUSATE SODIUM
  53. LEVAQUIN [Concomitant]
     Active Substance: LEVOFLOXACIN
  54. IRON [Concomitant]
     Active Substance: IRON
  55. ELIQUIS [Concomitant]
     Active Substance: APIXABAN
  56. FLUCONAZOLE [Concomitant]
     Active Substance: FLUCONAZOLE
  57. FOLIC ACID [Concomitant]
     Active Substance: FOLIC ACID
  58. FORTOVASE [Concomitant]
     Active Substance: SAQUINAVIR
  59. HYDROCODONE BITARTRATE [Concomitant]
     Active Substance: HYDROCODONE BITARTRATE
  60. LIDEX [Concomitant]
     Active Substance: FLUOCINONIDE
  61. MAGNESIUM GLUCONATE [Concomitant]
     Active Substance: MAGNESIUM GLUCONATE
  62. MECLIZINE HYDROCHLORIDE [Concomitant]
     Active Substance: MECLIZINE HYDROCHLORIDE
  63. MENACTRA [Concomitant]
     Active Substance: NEISSERIA MENINGITIDIS GROUP A CAPSULAR POLYSACCHARIDE DIPHTHERIA TOXOID CONJUGATE ANTIGEN\NEISSERIA
  64. MUCINEX D [Concomitant]
     Active Substance: GUAIFENESIN\PSEUDOEPHEDRINE HYDROCHLORIDE
  65. MYCOBUTIN [Concomitant]
     Active Substance: RIFABUTIN
  66. NYSTATIN [Concomitant]
     Active Substance: NYSTATIN
  67. ZITHROMAX [Concomitant]
     Active Substance: AZITHROMYCIN DIHYDRATE
  68. PREVNAR [Concomitant]
     Active Substance: PNEUMOCOCCAL 7-VALENT CONJUGATE VACCINE (DIPHTHERIA CRM197 PROTEIN)
  69. TAMIFLU [Concomitant]
     Active Substance: OSELTAMIVIR PHOSPHATE

REACTIONS (5)
  - Chronic kidney disease [Not Recovered/Not Resolved]
  - Renal failure [Recovered/Resolved]
  - Acute kidney injury [Recovered/Resolved]
  - End stage renal disease [Unknown]
  - Renal impairment [Unknown]

NARRATIVE: CASE EVENT DATE: 20090829
